FAERS Safety Report 11761173 (Version 1)
Quarter: 2015Q4

REPORT INFORMATION
  Report Type: Spontaneous
  Country: CA (occurrence: CA)
  Receive Date: 20151120
  Receipt Date: 20151120
  Transmission Date: 20160304
  Serious: Yes (Life-Threatening)
  Sender: FDA-Public Use
  Company Number: CA-ROCHE-1660647

PATIENT
  Age: 72 Year
  Sex: Female

DRUGS (2)
  1. DEXAMETHASONE. [Concomitant]
     Active Substance: DEXAMETHASONE
  2. KADCYLA [Suspect]
     Active Substance: ADO-TRASTUZUMAB EMTANSINE
     Indication: BREAST CANCER
     Dosage: 100MG AND 160MG AND 160MG VIALS
     Route: 042

REACTIONS (4)
  - Blood bilirubin increased [Recovered/Resolved]
  - General physical health deterioration [Recovered/Resolved]
  - Focal nodular hyperplasia [Recovered/Resolved]
  - Hepatic cirrhosis [Recovered/Resolved]
